FAERS Safety Report 18715582 (Version 2)
Quarter: 2021Q1

REPORT INFORMATION
  Report Type: Other
  Country: US (occurrence: US)
  Receive Date: 20210108
  Receipt Date: 20210113
  Transmission Date: 20210419
  Serious: Yes (Death)
  Sender: FDA-Public Use
  Company Number: US-ROCHE-2746202

PATIENT
  Sex: Female

DRUGS (3)
  1. RITUXAN [Suspect]
     Active Substance: RITUXIMAB
     Indication: ARTERITIS
     Route: 042
     Dates: start: 20171128
  2. RITUXAN [Suspect]
     Active Substance: RITUXIMAB
     Indication: PEMPHIGOID
     Dosage: INFUSE 675 MG INTRAVENOUSLY EVERY 3 MONTH(S)?10 MG VIAL
     Route: 042
  3. RITUXAN [Suspect]
     Active Substance: RITUXIMAB
     Route: 042
     Dates: start: 20171226

REACTIONS (3)
  - COVID-19 [Fatal]
  - Off label use [Fatal]
  - Intentional product use issue [Fatal]
